FAERS Safety Report 5355562-7 (Version None)
Quarter: 2007Q2

REPORT INFORMATION
  Report Type: 
  Country: None (occurrence: None)
  Receive Date: 20070525
  Receipt Date: 20070214
  Transmission Date: 20071010
  Serious: Yes (Hospitalization)
  Sender: FDA-Public Use
  Company Number: WAES 0702USA02679

PATIENT
  Age: 53 Year
  Sex: Male

DRUGS (2)
  1. VYTORIN [Suspect]
     Indication: BLOOD CHOLESTEROL INCREASED
     Dosage: 10-40 MG/DAILY/PO
     Route: 048
     Dates: start: 20060914, end: 20070114
  2. METFORMIN [Concomitant]

REACTIONS (2)
  - MUSCULAR WEAKNESS [None]
  - NAUSEA [None]
